FAERS Safety Report 5286462-9 (Version None)
Quarter: 2007Q1

REPORT INFORMATION
  Report Type: 
  Country: None (occurrence: None)
  Receive Date: 20070116
  Receipt Date: 20061024
  Transmission Date: 20070707
  Serious: No
  Sender: FDA-Public Use
  Company Number: 2006SP003807

PATIENT
  Age: 57 Year
  Sex: Male
  Weight: 63.5036 kg

DRUGS (11)
  1. LUNESTA [Suspect]
     Indication: SLEEP DISORDER
     Dosage: 3 MG; ORAL
     Route: 048
     Dates: start: 20061023, end: 20061026
  2. TOPROL-XL [Concomitant]
  3. CRESTOR [Concomitant]
  4. CELEBREX [Concomitant]
  5. PREVACID [Concomitant]
  6. ALLEGRA [Concomitant]
  7. FLONASE [Concomitant]
  8. XANAX [Concomitant]
  9. ASCORBIC ACID [Concomitant]
  10. ZINC [Concomitant]
  11. TYLENOL [Concomitant]

REACTIONS (4)
  - DEPRESSION [None]
  - DRY MOUTH [None]
  - DYSGEUSIA [None]
  - MIDDLE INSOMNIA [None]
